FAERS Safety Report 5304647-X (Version None)
Quarter: 2007Q2

REPORT INFORMATION
  Report Type: 
  Country: None (occurrence: None)
  Receive Date: 20070416
  Receipt Date: 20070410
  Transmission Date: 20071010
  Serious: Yes (Other)
  Sender: FDA-Public Use
  Company Number: E2090-00210-SPO-SE

PATIENT
  Age: 41 Year
  Sex: Female
  Weight: 68 kg

DRUGS (4)
  1. ZONEGRAN [Suspect]
     Indication: EPILEPSY
     Dosage: 25 MG, 1 IN 1 D, ORAL
     Route: 048
     Dates: start: 20070131, end: 20070205
  2. FENEMAL (PHENOBARBITAL) [Concomitant]
  3. KEPPRA [Concomitant]
  4. LAMICTAL [Concomitant]

REACTIONS (1)
  - ANGIOEDEMA [None]
